FAERS Safety Report 21352215 (Version 1)
Quarter: 2022Q3

REPORT INFORMATION
  Report Type: Report from Study
  Country: PH (occurrence: PH)
  Receive Date: 20220920
  Receipt Date: 20220920
  Transmission Date: 20221027
  Serious: Yes (Hospitalization, Other)
  Sender: FDA-Public Use
  Company Number: PH-NOVARTISPH-NVSC2022PH210663

PATIENT
  Age: 36 Year
  Sex: Female

DRUGS (1)
  1. ENTRESTO [Suspect]
     Active Substance: SACUBITRIL\VALSARTAN
     Indication: Product used for unknown indication
     Dosage: 200 MG, BID
     Route: 048

REACTIONS (9)
  - Nephrolithiasis [Unknown]
  - Cardiac failure [Unknown]
  - Urinary tract obstruction [Unknown]
  - Type 2 diabetes mellitus [Unknown]
  - Cardiomyopathy [Unknown]
  - Abnormal uterine bleeding [Unknown]
  - Hypertension [Unknown]
  - Ovarian germ cell teratoma benign [Unknown]
  - Ovarian cyst [Unknown]

NARRATIVE: CASE EVENT DATE: 20220508
